FAERS Safety Report 4825453-6 (Version None)
Quarter: 2005Q4

REPORT INFORMATION
  Report Type: 
  Country: None (occurrence: None)
  Receive Date: 20051111
  Receipt Date: 20050331
  Transmission Date: 20060501
  Serious: Yes (Hospitalization, Disabling)
  Sender: FDA-Public Use
  Company Number: US-MERCK-0504USA00221

PATIENT
  Age: 66 Year
  Sex: Female
  Weight: 86 kg

DRUGS (11)
  1. VIOXX [Suspect]
     Indication: ARTHRITIS
     Route: 048
     Dates: start: 20010101
  2. SYNTHROID [Concomitant]
     Route: 065
  3. MIACALCIN [Concomitant]
     Route: 065
  4. ACTOS [Concomitant]
     Route: 065
  5. STARLIX [Concomitant]
     Route: 065
  6. PROMETHAZINE [Concomitant]
     Route: 065
  7. CODEINE [Concomitant]
     Route: 065
  8. LEVOXYL [Concomitant]
     Route: 065
  9. ASPIRIN [Concomitant]
     Route: 065
  10. [THERAPY UNSPECIFIED] [Concomitant]
     Route: 065
  11. PHENTERMINE [Concomitant]
     Route: 065

REACTIONS (16)
  - BLOOD CHOLESTEROL INCREASED [None]
  - CARDIAC FAILURE CONGESTIVE [None]
  - CHEST PAIN [None]
  - CORONARY ARTERY OCCLUSION [None]
  - DIABETES MELLITUS [None]
  - DIABETIC CARDIOMYOPATHY [None]
  - DILATATION VENTRICULAR [None]
  - DIZZINESS [None]
  - HYPERTENSIVE CARDIOMYOPATHY [None]
  - HYPERTHYROIDISM [None]
  - LOSS OF CONSCIOUSNESS [None]
  - MYOCARDIAL ISCHAEMIA [None]
  - OBESITY [None]
  - SQUAMOUS CELL CARCINOMA [None]
  - URINARY INCONTINENCE [None]
  - VENTRICULAR DYSFUNCTION [None]
